FAERS Safety Report 9307777 (Version 3)
Quarter: 2013Q3

REPORT INFORMATION
  Report Type: Spontaneous
  Country: US (occurrence: US)
  Receive Date: 20130524
  Receipt Date: 20130709
  Transmission Date: 20140515
  Serious: Yes (Hospitalization, Other)
  Sender: FDA-Public Use
  Company Number: US-PFIZER INC-2013156168

PATIENT
  Age: 91 Year
  Sex: Female

DRUGS (3)
  1. XALATAN [Suspect]
     Indication: GLAUCOMA
     Dosage: 1 GTT, 1X/DAY
     Route: 047
  2. XALATAN [Suspect]
     Indication: MACULAR DEGENERATION
  3. SUCRALFATE [Concomitant]
     Indication: GASTROINTESTINAL DISORDER
     Dosage: 1 G, 3 TO 4 TIMES A DAY

REACTIONS (4)
  - Myocardial infarction [Recovered/Resolved]
  - Myocardial infarction [Unknown]
  - Cardiac failure congestive [Unknown]
  - Dyspnoea [Unknown]
